FAERS Safety Report 6132103-8 (Version None)
Quarter: 2009Q1

REPORT INFORMATION
  Report Type: 
  Country: None (occurrence: None)
  Receive Date: 20090325
  Receipt Date: 20090319
  Transmission Date: 20090719
  Serious: Yes (Other)
  Sender: FDA-Public Use
  Company Number: A0774013A

PATIENT
  Age: 55 Year
  Sex: Male

DRUGS (3)
  1. VENTOLIN [Suspect]
     Indication: RESPIRATORY TRACT CONGESTION
     Dosage: 1PUFF UNKNOWN
     Route: 055
     Dates: start: 20090316
  2. HYDROCHLOROTHIAZIDE [Concomitant]
  3. LISINOPRIL [Concomitant]

REACTIONS (1)
  - LOSS OF CONSCIOUSNESS [None]
